FAERS Safety Report 20709179 (Version 1)
Quarter: 2022Q2

REPORT INFORMATION
  Report Type: Spontaneous
  Country: US (occurrence: None)
  Receive Date: 20220413
  Receipt Date: 20220413
  Transmission Date: 20220720
  Serious: Yes (Other)
  Sender: FDA-Public Use
  Company Number: None

PATIENT
  Age: 68 Year
  Sex: Male

DRUGS (8)
  1. OPSUMIT [Suspect]
     Active Substance: MACITENTAN
     Indication: Pulmonary arterial hypertension
     Dosage: FREQUENCY : DAILY;?
     Route: 048
     Dates: start: 20211208
  2. SILDENAFIL [Concomitant]
     Active Substance: SILDENAFIL
  3. BUMETANIDE [Concomitant]
  4. LEVOTHYROXINE [Concomitant]
  5. POTASSIUM CHLORIDE [Concomitant]
  6. ATORVASTATIN [Concomitant]
  7. SPIRONOLACTONE [Concomitant]
  8. ALBUTEROL SULFATE [Concomitant]
     Active Substance: ALBUTEROL SULFATE

REACTIONS (4)
  - Pulmonary hypertension [None]
  - Drug abuse [None]
  - Ascites [None]
  - Hypersensitivity [None]

NARRATIVE: CASE EVENT DATE: 20220324
